FAERS Safety Report 16732372 (Version 1)
Quarter: 2019Q3

REPORT INFORMATION
  Report Type: Spontaneous
  Country: DE (occurrence: DE)
  Receive Date: 20190822
  Receipt Date: 20190822
  Transmission Date: 20191005
  Serious: Yes (Hospitalization, Other)
  Sender: FDA-Public Use
  Company Number: DE-ASTRAZENECA-2019SF19097

PATIENT
  Sex: Female

DRUGS (4)
  1. TILIDIN [Concomitant]
     Active Substance: NALOXONE HYDROCHLORIDE\TILIDINE HYDROCHLORIDE
  2. BRIVIACT [Concomitant]
     Active Substance: BRIVARACETAM
  3. TAGRISSO [Suspect]
     Active Substance: OSIMERTINIB
     Route: 048
  4. PRAMIPEXOL [Concomitant]
     Active Substance: PRAMIPEXOLE

REACTIONS (1)
  - Epilepsy [Unknown]
